FAERS Safety Report 6571347-8 (Version None)
Quarter: 2010Q1

REPORT INFORMATION
  Report Type: 
  Country: None (occurrence: None)
  Receive Date: 20100205
  Receipt Date: 20100127
  Transmission Date: 20100710
  Serious: Yes (Hospitalization)
  Sender: FDA-Public Use
  Company Number: US-BIOGENIDEC-2010BI003036

PATIENT
  Age: 54 Year
  Sex: Female

DRUGS (1)
  1. TYSABRI [Suspect]
     Indication: MULTIPLE SCLEROSIS
     Route: 042
     Dates: start: 20080201

REACTIONS (7)
  - ASTHENIA [None]
  - DEHYDRATION [None]
  - HYDRONEPHROSIS [None]
  - NEPHROLITHIASIS [None]
  - PAIN [None]
  - RENAL FAILURE [None]
  - VOMITING [None]
